FAERS Safety Report 11221663 (Version 2)
Quarter: 2016Q3

REPORT INFORMATION
  Report Type: Report from Study
  Country: US (occurrence: US)
  Receive Date: 20150626
  Receipt Date: 20160924
  Transmission Date: 20161109
  Serious: Yes (Hospitalization, Other)
  Sender: FDA-Public Use
  Company Number: US-AMGEN-USASP2015062389

PATIENT
  Age: 40 Year
  Sex: Female
  Weight: 90.7 kg

DRUGS (3)
  1. ENBREL [Suspect]
     Active Substance: ETANERCEPT
     Indication: RHEUMATOID ARTHRITIS
     Dosage: 50 MG, QWK
     Route: 065
     Dates: start: 20030801
  2. METHOTREXATE. [Concomitant]
     Active Substance: METHOTREXATE
     Dosage: 12.5 MG, QWK
  3. ENBREL [Suspect]
     Active Substance: ETANERCEPT
     Dosage: 50 MG, QWK
     Route: 065

REACTIONS (25)
  - Acne [Unknown]
  - Swelling [Not Recovered/Not Resolved]
  - Mobility decreased [Unknown]
  - Unevaluable event [Unknown]
  - Skin disorder [Unknown]
  - Decreased appetite [Unknown]
  - Weight decreased [Unknown]
  - Thermal burn [Unknown]
  - Pain [Not Recovered/Not Resolved]
  - Hypoaesthesia [Not Recovered/Not Resolved]
  - Erythema [Unknown]
  - Stress [Unknown]
  - Female sterilisation [Recovered/Resolved]
  - Weight fluctuation [Unknown]
  - Musculoskeletal stiffness [Not Recovered/Not Resolved]
  - Intra-uterine contraceptive device removal [Recovered/Resolved]
  - Narcolepsy [Unknown]
  - Rash [Not Recovered/Not Resolved]
  - Injection site pain [Recovered/Resolved]
  - Injection site discomfort [Unknown]
  - Scar [Not Recovered/Not Resolved]
  - Emotional distress [Recovered/Resolved]
  - Diarrhoea [Not Recovered/Not Resolved]
  - Injection site reaction [Unknown]
  - Muscular weakness [Unknown]

NARRATIVE: CASE EVENT DATE: 2009
